FAERS Safety Report 7288828 (Version 6)
Quarter: 2013Q3

REPORT INFORMATION
  Report Type: Spontaneous
  Country: CA (occurrence: CA)
  Receive Date: 20100222
  Receipt Date: 20130805
  Transmission Date: 20140515
  Serious: Yes (Death, Other)
  Sender: FDA-Public Use
  Company Number: CA-PFIZER INC-2010019116

PATIENT
  Age: 21 Year
  Sex: Female

DRUGS (1)
  1. CHAMPIX [Suspect]
     Indication: SMOKING CESSATION THERAPY
     Dosage: UNK
     Dates: start: 200906

REACTIONS (5)
  - Overdose [Fatal]
  - Completed suicide [Fatal]
  - Irritability [Unknown]
  - Anger [Unknown]
  - Emotional disorder [Unknown]
